FAERS Safety Report 7130515-7 (Version None)
Quarter: 2010Q4

REPORT INFORMATION
  Report Type: 
  Country: None (occurrence: None)
  Receive Date: 20101201
  Receipt Date: 20101122
  Transmission Date: 20110411
  Serious: Yes (Death)
  Sender: FDA-Public Use
  Company Number: US-JNJFOC-20061100529

PATIENT
  Sex: Female
  Weight: 49.9 kg

DRUGS (10)
  1. RISPERDAL [Suspect]
     Indication: PRODUCT USED FOR UNKNOWN INDICATION
  2. ALBUTEROL [Concomitant]
  3. ELAVIL [Concomitant]
  4. LEVOTHYROXINE [Concomitant]
  5. VALIUM [Concomitant]
  6. PROTONIX [Concomitant]
  7. ARICEPT [Concomitant]
  8. COUMADIN [Concomitant]
  9. FLONASE [Concomitant]
     Route: 045
  10. PREDNISONE [Concomitant]
     Route: 048

REACTIONS (8)
  - ANXIETY [None]
  - BACK PAIN [None]
  - DEVICE DISLOCATION [None]
  - FALL [None]
  - HIP FRACTURE [None]
  - MYOCARDIAL INFARCTION [None]
  - PSYCHOTIC BEHAVIOUR [None]
  - WRIST FRACTURE [None]
